FAERS Safety Report 5521515-9 (Version None)
Quarter: 2007Q4

REPORT INFORMATION
  Report Type: 
  Country: None (occurrence: None)
  Receive Date: 20071120
  Receipt Date: 20071105
  Transmission Date: 20080405
  Serious: Yes (Congenital Anomaly)
  Sender: FDA-Public Use
  Company Number: ES-NOVOPROD-269111

PATIENT

DRUGS (4)
  1. LEVEMIR [Suspect]
     Indication: DRUG USE FOR UNKNOWN INDICATION
     Route: 064
  2. NOVORAPID [Concomitant]
  3. INSULATARD [Concomitant]
  4. HUMALOG MIX 50 [Concomitant]

REACTIONS (1)
  - CONGENITAL ANOMALY [None]
